FAERS Safety Report 15854159 (Version 2)
Quarter: 2019Q1

REPORT INFORMATION
  Report Type: Spontaneous
  Country: US (occurrence: US)
  Receive Date: 20190122
  Receipt Date: 20190220
  Transmission Date: 20190417
  Serious: Yes (Death, Hospitalization, Other)
  Sender: FDA-Public Use
  Company Number: US-SA-2018SA331126

PATIENT
  Age: 54 Year
  Sex: Female

DRUGS (1)
  1. AUBAGIO [Suspect]
     Active Substance: TERIFLUNOMIDE
     Indication: MULTIPLE SCLEROSIS
     Dosage: 14 MG, QD
     Route: 048
     Dates: start: 20181029, end: 20181124

REACTIONS (6)
  - Chronic obstructive pulmonary disease [Fatal]
  - Syncope [Unknown]
  - Pneumonia [Fatal]
  - Dysphagia [Unknown]
  - Respiratory failure [Fatal]
  - Failure to thrive [Fatal]

NARRATIVE: CASE EVENT DATE: 20181124
